FAERS Safety Report 8294027-X (Version None)
Quarter: 2012Q2

REPORT INFORMATION
  Report Type: 
  Country: None (occurrence: None)
  Receive Date: 20120413
  Receipt Date: 20120413
  Transmission Date: 20120825
  Serious: No
  Sender: FDA-Public Use
  Company Number: None

PATIENT
  Age: 57 Year
  Sex: Female

DRUGS (2)
  1. NALTREXONE HYDROCHLORIDE [Suspect]
     Dates: start: 20110207, end: 20110404
  2. ANTABUSE [Suspect]
     Dates: start: 20110202, end: 20110401

REACTIONS (6)
  - CHOLANGITIS [None]
  - HEPATIC FIBROSIS [None]
  - LIVER INJURY [None]
  - HEPATITIS CHOLESTATIC [None]
  - ASCITES [None]
  - TOXICITY TO VARIOUS AGENTS [None]
